FAERS Safety Report 5413077-1 (Version None)
Quarter: 2007Q3

REPORT INFORMATION
  Report Type: 
  Country: None (occurrence: None)
  Receive Date: 20070813
  Receipt Date: 20070802
  Transmission Date: 20080115
  Serious: Yes (Other)
  Sender: FDA-Public Use
  Company Number: US-PFIZER INC-2007064548

PATIENT

DRUGS (2)
  1. TIKOSYN [Suspect]
     Dosage: TEXT:UNKNOWN
     Route: 065
  2. NEURONTIN [Suspect]
     Dosage: FREQ:UNKNOWN
     Route: 065

REACTIONS (4)
  - ASTHENIA [None]
  - CHEST DISCOMFORT [None]
  - DIZZINESS [None]
  - FACIAL PALSY [None]
